FAERS Safety Report 12795444 (Version 2)
Quarter: 2016Q4

REPORT INFORMATION
  Report Type: Spontaneous
  Country: US (occurrence: US)
  Receive Date: 20160929
  Receipt Date: 20161005
  Transmission Date: 20170207
  Serious: Yes (Hospitalization)
  Sender: FDA-Public Use
  Company Number: US-HORIZON-RAV-0193-2016

PATIENT
  Age: 3 Year
  Sex: Male

DRUGS (4)
  1. ANAMIX JR [Concomitant]
  2. SOLCARB [Concomitant]
  3. RAVICTI [Suspect]
     Active Substance: GLYCEROL PHENYLBUTYRATE
     Indication: ORNITHINE TRANSCARBAMOYLASE DEFICIENCY
     Dosage: 2.5 ML TID, 7 ML DAILY ORALLY
     Dates: start: 20130828
  4. PROPHREE [Concomitant]

REACTIONS (4)
  - Hyperammonaemia [Recovered/Resolved]
  - Constipation [Recovered/Resolved]
  - Respiratory tract infection [Recovered/Resolved]
  - Multiple allergies [Recovered/Resolved]

NARRATIVE: CASE EVENT DATE: 201608
